FAERS Safety Report 13507926 (Version 3)
Quarter: 2017Q2

REPORT INFORMATION
  Report Type: Spontaneous
  Country: US (occurrence: US)
  Receive Date: 20170503
  Receipt Date: 20170615
  Transmission Date: 20170830
  Serious: No
  Sender: FDA-Public Use
  Company Number: US-PFIZER INC-2017190553

PATIENT
  Age: 14 Year
  Sex: Female
  Weight: 45.4 kg

DRUGS (10)
  1. EUCRISA [Suspect]
     Active Substance: CRISABOROLE
     Dosage: UNK
     Dates: start: 20170417
  2. TRIAM /00031901/ [Concomitant]
     Dosage: UNK, 2X/DAY (ON S-S)
  3. EUCRISA [Suspect]
     Active Substance: CRISABOROLE
     Indication: DERMATITIS ATOPIC
     Dosage: UNK UNK, 2X/DAY
     Route: 061
     Dates: start: 20170414, end: 20170428
  4. VASELINE PURE [Concomitant]
     Active Substance: PETROLATUM
     Indication: DRY SKIN PROPHYLAXIS
     Dosage: UNK
  5. MOMETASONE [Concomitant]
     Active Substance: MOMETASONE
     Dosage: UNK
  6. ELIDEL [Concomitant]
     Active Substance: PIMECROLIMUS
     Dosage: UNK (1% TWICE A DAY MONDAY THROUGH FRIDAY)
  7. BACITRACIN. [Concomitant]
     Active Substance: BACITRACIN
     Dosage: ONLY USED WHEN PATIENT HAS FLARE UPS
  8. EUCRISA [Suspect]
     Active Substance: CRISABOROLE
     Indication: ECZEMA
     Dosage: UNK UNK, 2X/DAY
     Route: 061
     Dates: start: 20170424, end: 20170427
  9. AQUAPHOR [Concomitant]
     Active Substance: PETROLATUM
     Dosage: UNK, 2X/DAY (ONLY USED WHEN PATIENT HAS FLARE UPS) X 3 DAYS MIXED WITH VASELINE
  10. DERMA-SMOOTHE OIL [Concomitant]
     Dosage: UNK (USES ON THE WEEKENDS)

REACTIONS (7)
  - Skin hypertrophy [Not Recovered/Not Resolved]
  - Skin burning sensation [Unknown]
  - Pruritus [Unknown]
  - Erythema [Recovering/Resolving]
  - Drug hypersensitivity [Not Recovered/Not Resolved]
  - Rash [Not Recovered/Not Resolved]
  - Condition aggravated [Recovering/Resolving]

NARRATIVE: CASE EVENT DATE: 20170425
